FAERS Safety Report 6173106-7 (Version None)
Quarter: 2009Q2

REPORT INFORMATION
  Report Type: 
  Country: None (occurrence: None)
  Receive Date: 20090428
  Receipt Date: 20090414
  Transmission Date: 20091009
  Serious: Yes (Death, Hospitalization)
  Sender: FDA-Public Use
  Company Number: 2009001148

PATIENT
  Age: 65 Year
  Sex: Female

DRUGS (2)
  1. ERLOTINIB (ERLOTINIB) (TABLET) (ERLOTINIB) [Suspect]
     Indication: NON-SMALL CELL LUNG CANCER
     Dosage: (150 MG, QD), ORAL
     Route: 048
     Dates: start: 20090226, end: 20090319
  2. R1507 (R04858696) [Suspect]
     Indication: NON-SMALL CELL LUNG CANCER
     Dosage: INTRAVENOUS
     Route: 042

REACTIONS (8)
  - BACTERIAL INFECTION [None]
  - BLOOD CREATININE DECREASED [None]
  - BLOOD PRESSURE DECREASED [None]
  - DYSPNOEA [None]
  - HAEMOGLOBIN DECREASED [None]
  - NAUSEA [None]
  - SEPSIS [None]
  - VOMITING [None]
